FAERS Safety Report 24690124 (Version 1)
Quarter: 2024Q4

REPORT INFORMATION
  Report Type: Spontaneous
  Country: US (occurrence: US)
  Receive Date: 20241203
  Receipt Date: 20241203
  Transmission Date: 20250115
  Serious: No
  Sender: TEVA
  Company Number: US-TEVA-VS-3265496

PATIENT
  Age: 44 Year
  Sex: Male

DRUGS (1)
  1. AUSTEDO [Suspect]
     Active Substance: DEUTETRABENAZINE
     Indication: Tardive dyskinesia
     Dosage: TWICE DAILY
     Route: 048
     Dates: start: 20190701, end: 20200615

REACTIONS (5)
  - Disease recurrence [Not Recovered/Not Resolved]
  - Speech disorder [Not Recovered/Not Resolved]
  - Dyskinesia [Not Recovered/Not Resolved]
  - Product dose omission issue [Unknown]
  - Economic problem [Unknown]

NARRATIVE: CASE EVENT DATE: 20200620
